FAERS Safety Report 6346490-9 (Version None)
Quarter: 2009Q3

REPORT INFORMATION
  Report Type: 
  Country: None (occurrence: None)
  Receive Date: 20090901
  Receipt Date: 20081222
  Transmission Date: 20100115
  Serious: Yes (Hospitalization)
  Sender: FDA-Public Use
  Company Number: 2008BI034694

PATIENT
  Age: 37 Year
  Sex: Female
  Weight: 70.7611 kg

DRUGS (1)
  1. TYSABRI [Suspect]
     Indication: MULTIPLE SCLEROSIS
     Dosage: 300 MG;QM;IV
     Route: 042
     Dates: start: 20080925

REACTIONS (3)
  - BLOOD POTASSIUM DECREASED [None]
  - PHARYNGITIS [None]
  - TONSILLECTOMY [None]
